FAERS Safety Report 15061955 (Version 1)
Quarter: 2018Q2

REPORT INFORMATION
  Report Type: Spontaneous
  Country: CA (occurrence: CA)
  Receive Date: 20180625
  Receipt Date: 20180625
  Transmission Date: 20180711
  Serious: Yes (Other)
  Sender: FDA-Public Use
  Company Number: CA-OTSUKA-2015_008542AA

PATIENT
  Age: 3 Month
  Sex: Female

DRUGS (1)
  1. ABILIFY [Suspect]
     Active Substance: ARIPIPRAZOLE
     Indication: PRODUCT USED FOR UNKNOWN INDICATION
     Dosage: UNK
     Route: 064

REACTIONS (10)
  - Product use issue [Unknown]
  - Foetal exposure during pregnancy [Unknown]
  - Overdose [Unknown]
  - Dizziness [Unknown]
  - Bone density abnormal [Unknown]
  - Live birth [Unknown]
  - Upper limb fracture [Unknown]
  - Weight increased [Unknown]
  - Heart rate irregular [Unknown]
  - Maternal exposure during pregnancy [Unknown]
